APPROVED DRUG PRODUCT: METHOTREXATE SODIUM
Active Ingredient: METHOTREXATE SODIUM
Strength: EQ 2.5MG BASE
Dosage Form/Route: TABLET;ORAL
Application: A040233 | Product #001
Applicant: DURAMED PHARMACEUTICALS INC SUB BARR LABORATORIES INC
Approved: Jun 17, 1999 | RLD: No | RS: No | Type: DISCN